FAERS Safety Report 23566159 (Version 1)
Quarter: 2024Q1

REPORT INFORMATION
  Report Type: Spontaneous
  Country: IE (occurrence: IE)
  Receive Date: 20240226
  Receipt Date: 20240226
  Transmission Date: 20240410
  Serious: Yes (Other)
  Sender: FDA-Public Use
  Company Number: None

PATIENT
  Age: 38 Year
  Sex: Male

DRUGS (3)
  1. SERTRALINE [Suspect]
     Active Substance: SERTRALINE HYDROCHLORIDE
     Indication: Depression
     Dosage: 150 MILLIGRAM
     Route: 048
     Dates: start: 20220211, end: 20240122
  2. QUETIAPINE [Concomitant]
     Active Substance: QUETIAPINE
     Indication: Agitation
     Dosage: 25 MILLIGRAM
     Route: 065
     Dates: start: 20231016, end: 20240202
  3. QUETIAPINE [Concomitant]
     Active Substance: QUETIAPINE
     Indication: Insomnia

REACTIONS (4)
  - Emotional distress [Recovered/Resolved]
  - Speech disorder [Recovered/Resolved]
  - Bruxism [Recovered/Resolved]
  - Tooth erosion [Unknown]

NARRATIVE: CASE EVENT DATE: 20240119
